FAERS Safety Report 5357446-7 (Version None)
Quarter: 2007Q2

REPORT INFORMATION
  Report Type: 
  Country: None (occurrence: None)
  Receive Date: 20070530
  Receipt Date: 20061115
  Transmission Date: 20071010
  Serious: Yes (Hospitalization)
  Sender: FDA-Public Use
  Company Number: US200607000546

PATIENT
  Sex: Female
  Weight: 116.1 kg

DRUGS (1)
  1. ZYPREXA [Suspect]
     Indication: DEPRESSION
     Dosage: 25 MG
     Dates: start: 20000101, end: 20000101

REACTIONS (4)
  - DIABETES MELLITUS [None]
  - HYPERGLYCAEMIA [None]
  - OBESITY [None]
  - PRESCRIBED OVERDOSE [None]
